FAERS Safety Report 5802968-5 (Version None)
Quarter: 2008Q3

REPORT INFORMATION
  Report Type: 
  Country: None (occurrence: None)
  Receive Date: 20080703
  Receipt Date: 20080618
  Transmission Date: 20090109
  Serious: Yes (Death)
  Sender: FDA-Public Use
  Company Number: MC200800254

PATIENT
  Age: 77 Year
  Sex: Male
  Weight: 101.9 kg

DRUGS (2)
  1. ANGIOMAX [Suspect]
     Indication: PERCUTANEOUS CORONARY INTERVENTION
     Dosage: 15.7 ML, BOLUS, INTRAVENOUS; 2 ML, HR, INTRAVENOUS
     Route: 042
     Dates: start: 20080528, end: 20080528
  2. ANGIOMAX [Suspect]
     Indication: PERCUTANEOUS CORONARY INTERVENTION
     Dosage: 15.7 ML, BOLUS, INTRAVENOUS; 2 ML, HR, INTRAVENOUS
     Route: 042
     Dates: start: 20080528, end: 20080528

REACTIONS (1)
  - CEREBROVASCULAR ACCIDENT [None]
